FAERS Safety Report 22210741 (Version 3)
Quarter: 2023Q2

REPORT INFORMATION
  Report Type: Report from Study
  Country: US (occurrence: US)
  Receive Date: 20230414
  Receipt Date: 20230612
  Transmission Date: 20230722
  Serious: Yes (Hospitalization, Other)
  Sender: FDA-Public Use
  Company Number: US-002147023-NVSC2023US082202

PATIENT
  Sex: Female

DRUGS (1)
  1. KISQALI [Suspect]
     Active Substance: RIBOCICLIB
     Indication: Product used for unknown indication
     Dosage: UNK UNK, QD (WAS STARTED ON 1 PILL PER DAY WITH THE PLAN TO SLOWLY INCREASE PER MD INSTRUCTION)
     Route: 048

REACTIONS (11)
  - Pneumonia [Unknown]
  - Pyrexia [Unknown]
  - Renal impairment [Unknown]
  - Kidney infection [Unknown]
  - Heart rate increased [Unknown]
  - Oxygen saturation decreased [Unknown]
  - Blood pressure increased [Unknown]
  - Dyspnoea [Unknown]
  - Vomiting [Unknown]
  - Dyspepsia [Unknown]
  - Cough [Unknown]
